FAERS Safety Report 5840440-7 (Version None)
Quarter: 2008Q3

REPORT INFORMATION
  Report Type: 
  Country: None (occurrence: None)
  Receive Date: 20080807
  Receipt Date: 20080722
  Transmission Date: 20090109
  Serious: Yes (Death, Hospitalization, Other)
  Sender: FDA-Public Use
  Company Number: A-US2006-13110

PATIENT
  Age: 71 Year
  Sex: Female

DRUGS (1)
  1. TRACLEER [Suspect]
     Indication: PULMONARY HYPERTENSION
     Dosage: 125 MG, BID, ORAL; 62.5 MG, BID; ORAL
     Route: 048
     Dates: start: 20060807, end: 20070514

REACTIONS (4)
  - DYSPNOEA [None]
  - LIVER DISORDER [None]
  - SCLERODERMA [None]
  - VOMITING [None]
